FAERS Safety Report 5873413-9 (Version None)
Quarter: 2008Q3

REPORT INFORMATION
  Report Type: 
  Country: None (occurrence: None)
  Receive Date: 20080908
  Receipt Date: 20080715
  Transmission Date: 20090109
  Serious: No
  Sender: FDA-Public Use
  Company Number: US-BAYER-200828866NA

PATIENT
  Age: 38 Year
  Sex: Female
  Weight: 73 kg

DRUGS (4)
  1. MIRENA [Suspect]
     Indication: CONTRACEPTION
     Route: 015
     Dates: start: 20071001, end: 20071001
  2. MIRENA [Suspect]
     Route: 015
     Dates: start: 20071001, end: 20080601
  3. FLAGYL [Concomitant]
     Indication: BACTERIAL INFECTION
  4. MONISTAT [Concomitant]
     Indication: FUNGAL INFECTION

REACTIONS (5)
  - BACTERIAL INFECTION [None]
  - PROCEDURAL COMPLICATION [None]
  - VAGINAL DISCHARGE [None]
  - VAGINAL ODOUR [None]
  - VULVOVAGINAL MYCOTIC INFECTION [None]
